FAERS Safety Report 5530689-5 (Version None)
Quarter: 2007Q4

REPORT INFORMATION
  Report Type: 
  Country: None (occurrence: None)
  Receive Date: 20071130
  Receipt Date: 20071120
  Transmission Date: 20080405
  Serious: Yes (Death, Life-Threatening)
  Sender: FDA-Public Use
  Company Number: IT-JNJFOC-20070905119

PATIENT
  Sex: Female

DRUGS (8)
  1. TAVANIC [Suspect]
     Indication: PNEUMONIA
     Route: 042
  2. MOXIFLOXACIN HCL [Suspect]
     Indication: PNEUMONIA
     Route: 048
  3. CEFTRIAXONE SODIUM [Suspect]
     Indication: PNEUMONIA
     Route: 042
  4. SALINE SOLUTION [Concomitant]
     Indication: SYNCOPE
     Route: 065
  5. POTASSIUM CHLORIDE [Concomitant]
     Indication: SYNCOPE
     Route: 042
  6. ENOXAPARIN SODIUM [Concomitant]
     Indication: SYNCOPE
     Route: 058
  7. DIGOXIN [Concomitant]
     Route: 048
  8. DIGOXIN [Concomitant]
     Route: 048

REACTIONS (3)
  - DEATH [None]
  - HEPATITIS CHOLESTATIC [None]
  - XEROPHTHALMIA [None]
